FAERS Safety Report 22366662 (Version 1)
Quarter: 2023Q2

REPORT INFORMATION
  Report Type: Spontaneous
  Country: US (occurrence: None)
  Receive Date: 20230524
  Receipt Date: 20230524
  Transmission Date: 20230722
  Serious: Yes (Hospitalization)
  Sender: FDA-Public Use
  Company Number: None

PATIENT
  Age: 71 Year
  Sex: Female
  Weight: 76.5 kg

DRUGS (3)
  1. VALACYCLOVIR [Suspect]
     Active Substance: VALACYCLOVIR HYDROCHLORIDE
     Indication: Herpes zoster
     Dates: start: 20230504, end: 20230516
  2. Lisinopryl [Concomitant]
  3. OZEMPIC [Concomitant]
     Active Substance: SEMAGLUTIDE

REACTIONS (5)
  - Abdominal pain [None]
  - Nausea [None]
  - Alanine aminotransferase increased [None]
  - Aspartate aminotransferase increased [None]
  - Cholecystectomy [None]

NARRATIVE: CASE EVENT DATE: 20230516
